FAERS Safety Report 8460435-7 (Version None)
Quarter: 2012Q2

REPORT INFORMATION
  Report Type: 
  Country: None (occurrence: None)
  Receive Date: 20120622
  Receipt Date: 20120604
  Transmission Date: 20120825
  Serious: Yes (Other)
  Sender: FDA-Public Use
  Company Number: CHPA2012US012739

PATIENT
  Sex: Female

DRUGS (1)
  1. MYOFLEX [Suspect]
     Dosage: UNK, UNK

REACTIONS (1)
  - DRUG DEPENDENCE [None]
